FAERS Safety Report 10366438 (Version 1)
Quarter: 2014Q3

REPORT INFORMATION
  Report Type: Spontaneous
  Country: BR (occurrence: None)
  Receive Date: 20140804
  Receipt Date: 20140804
  Transmission Date: 20150326
  Serious: Yes (Other)
  Sender: FDA-Public Use
  Company Number: SYM-2014-23439

PATIENT
  Age: 46 Year
  Sex: Female
  Weight: 56 kg

DRUGS (2)
  1. TIMOPTOL (TIMOLOL MALEATE) (EYE DROPS, SOLUTION) (TIMOLOL MALEATE) [Suspect]
     Active Substance: TIMOLOL
     Indication: PRODUCT USED FOR UNKNOWN INDICATION
     Route: 047
  2. CARDIZEM (DILTIAZEM HYDROCHLORIDE0 (DILTIAZEM HYDROCHLORIDE0 [Concomitant]

REACTIONS (4)
  - Expired product administered [None]
  - Eye pruritus [None]
  - Visual impairment [None]
  - Eye irritation [None]
